FAERS Safety Report 8455139-0 (Version None)
Quarter: 2012Q2

REPORT INFORMATION
  Report Type: 
  Country: None (occurrence: None)
  Receive Date: 20120614
  Receipt Date: 20120614
  Transmission Date: 20120825
  Serious: Yes (Other)
  Sender: FDA-Public Use
  Company Number: None

PATIENT
  Sex: Female

DRUGS (1)
  1. HYDROCORTISONE [Suspect]
     Indication: DERMATITIS CONTACT
     Dosage: .2% 60GM, TWICE A DAY, TOP
     Route: 061
     Dates: start: 20120611, end: 20120611

REACTIONS (6)
  - SWELLING FACE [None]
  - PAIN [None]
  - PARAESTHESIA [None]
  - RASH GENERALISED [None]
  - FORMICATION [None]
  - DRUG INEFFECTIVE [None]
